FAERS Safety Report 17905988 (Version 1)
Quarter: 2020Q2

REPORT INFORMATION
  Report Type: Spontaneous
  Country: US (occurrence: US)
  Receive Date: 20200616
  Receipt Date: 20200616
  Transmission Date: 20200714
  Serious: No
  Sender: FDA-Public Use
  Company Number: None

PATIENT
  Sex: Female

DRUGS (1)
  1. BOTOX [Suspect]
     Active Substance: ONABOTULINUMTOXINA
     Indication: FACIAL SPASM
     Dosage: ?          OTHER FREQUENCY:EVERY 90 DAYS;OTHER ROUTE:IM?
     Dates: start: 20190801, end: 20200319

REACTIONS (2)
  - Blepharospasm [None]
  - Facial paralysis [None]
